FAERS Safety Report 6824626-0 (Version None)
Quarter: 2010Q3

REPORT INFORMATION
  Report Type: 
  Country: None (occurrence: None)
  Receive Date: 20100708
  Receipt Date: 20061110
  Transmission Date: 20110219
  Serious: No
  Sender: FDA-Public Use
  Company Number: US-PFIZER INC-2006143304

PATIENT
  Age: 55 Year
  Sex: Female
  Weight: 69.4 kg

DRUGS (2)
  1. CHANTIX [Suspect]
     Indication: EX-TOBACCO USER
     Dates: start: 20061001
  2. ALEVE (CAPLET) [Concomitant]

REACTIONS (2)
  - GASTROINTESTINAL DISORDER [None]
  - MYALGIA [None]
